FAERS Safety Report 6604295-5 (Version None)
Quarter: 2010Q1

REPORT INFORMATION
  Report Type: 
  Country: None (occurrence: None)
  Receive Date: 20100226
  Receipt Date: 20090831
  Transmission Date: 20100710
  Serious: No
  Sender: FDA-Public Use
  Company Number: A0801621A

PATIENT
  Age: 45 Year
  Sex: Male

DRUGS (4)
  1. LAMICTAL CD [Suspect]
     Dosage: 25MG PER DAY
     Route: 048
     Dates: start: 20090722, end: 20090803
  2. DESIPRAMINE [Concomitant]
  3. CIALIS [Concomitant]
  4. PRILOSEC [Concomitant]

REACTIONS (4)
  - DYSPNOEA [None]
  - HYPERSENSITIVITY [None]
  - SWOLLEN TONGUE [None]
  - TONGUE ULCERATION [None]
